FAERS Safety Report 6993378-6 (Version None)
Quarter: 2010Q3

REPORT INFORMATION
  Report Type: 
  Country: None (occurrence: None)
  Receive Date: 20100917
  Receipt Date: 20100609
  Transmission Date: 20110219
  Serious: No
  Sender: FDA-Public Use
  Company Number: US-ASTRAZENECA-2010SE26735

PATIENT
  Sex: Male
  Weight: 70.8 kg

DRUGS (14)
  1. SEROQUEL [Suspect]
     Indication: BIPOLAR DISORDER
     Route: 048
     Dates: start: 20100401
  2. SEROQUEL [Suspect]
     Route: 048
     Dates: start: 20100401
  3. ABILIFY [Concomitant]
     Indication: DEPRESSION
  4. ABILIFY [Concomitant]
     Indication: SCHIZOPHRENIA
  5. AMBIEN [Concomitant]
     Indication: SLEEP DISORDER
  6. ASPIRIN [Concomitant]
     Indication: CARDIAC DISORDER
  7. CLONIDINE HCL [Concomitant]
     Indication: HYPERTENSION
  8. CYMBALTA [Concomitant]
     Indication: DEPRESSION
  9. LISINOPRIL AND HYDROCHLOROTHIAZIDE [Concomitant]
     Indication: HYPERTENSION
  10. NORVASC [Concomitant]
     Indication: ANGINA PECTORIS
  11. PREDNISONE [Concomitant]
  12. SIMVASTATIN [Concomitant]
     Indication: BLOOD CHOLESTEROL INCREASED
  13. TEMAZEPAM [Concomitant]
     Indication: INSOMNIA
  14. ZANTAC [Concomitant]
     Indication: ULCER

REACTIONS (2)
  - FEELING ABNORMAL [None]
  - HYPOAESTHESIA [None]
